FAERS Safety Report 16043015 (Version 4)
Quarter: 2020Q1

REPORT INFORMATION
  Report Type: Spontaneous
  Country: JP (occurrence: JP)
  Receive Date: 20190306
  Receipt Date: 20200122
  Transmission Date: 20200409
  Serious: Yes (Other)
  Sender: FDA-Public Use
  Company Number: JP-JNJFOC-20180316192

PATIENT
  Age: 44 Year
  Sex: Female

DRUGS (9)
  1. EBRANTIL [Suspect]
     Active Substance: URAPIDIL
     Indication: ADVERSE EVENT
     Route: 048
     Dates: start: 20180320, end: 20180416
  2. PIOGLITAZONE. [Concomitant]
     Active Substance: PIOGLITAZONE
     Indication: TYPE 2 DIABETES MELLITUS
     Route: 048
     Dates: start: 20161214
  3. CANAGLIFLOZIN [Suspect]
     Active Substance: CANAGLIFLOZIN
     Indication: TYPE 2 DIABETES MELLITUS
     Route: 048
     Dates: start: 20160915
  4. BETANIS [Suspect]
     Active Substance: MIRABEGRON
     Indication: ADVERSE EVENT
     Route: 048
     Dates: start: 20180320, end: 20180416
  5. BASEN [VOGLIBOSE] [Concomitant]
     Active Substance: VOGLIBOSE
     Indication: TYPE 2 DIABETES MELLITUS
     Dosage: BEFORE 2009
     Route: 048
  6. AMARYL [Concomitant]
     Active Substance: GLIMEPIRIDE
     Indication: TYPE 2 DIABETES MELLITUS
     Dosage: NUMBER OF DIVIDED DOSES UNKNOWN
     Route: 048
  7. JANUVIA [Concomitant]
     Active Substance: SITAGLIPTIN PHOSPHATE
     Indication: TYPE 2 DIABETES MELLITUS
     Dosage: BEFORE 2009
     Route: 048
  8. METGLUCO [Concomitant]
     Active Substance: METFORMIN HYDROCHLORIDE
     Indication: TYPE 2 DIABETES MELLITUS
     Route: 048
     Dates: start: 20110630
  9. AMARYL [Concomitant]
     Active Substance: GLIMEPIRIDE
     Route: 048
     Dates: start: 20160915, end: 20161012

REACTIONS (6)
  - Intervertebral disc protrusion [Unknown]
  - Pain in extremity [Recovering/Resolving]
  - Low density lipoprotein increased [Recovered/Resolved]
  - Urinary incontinence [Recovering/Resolving]
  - Diarrhoea [Recovering/Resolving]
  - Neurogenic bladder [Recovering/Resolving]

NARRATIVE: CASE EVENT DATE: 201708
